FAERS Safety Report 20594319 (Version 1)
Quarter: 2022Q1

REPORT INFORMATION
  Report Type: Spontaneous
  Country: DE (occurrence: DE)
  Receive Date: 20220315
  Receipt Date: 20220315
  Transmission Date: 20220424
  Serious: No
  Sender: FDA-Public Use
  Company Number: DE-LUPIN PHARMACEUTICALS INC.-2022-03481

PATIENT
  Age: 30 Year
  Sex: Female

DRUGS (6)
  1. QUETIAPINE FUMARATE [Suspect]
     Active Substance: QUETIAPINE FUMARATE
     Indication: Mania
     Dosage: 800 MG, QD
     Route: 065
  2. QUETIAPINE FUMARATE [Suspect]
     Active Substance: QUETIAPINE FUMARATE
     Indication: Psychotic symptom
     Dosage: UNK
     Route: 065
  3. LEVOMEPROMAZINE [Suspect]
     Active Substance: LEVOMEPROMAZINE
     Indication: Mania
     Dosage: 100 MG, QD MAXIMUM DOSE FOR 4 WEEKS
     Route: 065
  4. LEVOMEPROMAZINE [Suspect]
     Active Substance: LEVOMEPROMAZINE
     Indication: Psychotic symptom
  5. LITHIUM [Suspect]
     Active Substance: LITHIUM
     Indication: Mania
     Dosage: 1125 MG
     Route: 065
  6. LITHIUM [Suspect]
     Active Substance: LITHIUM
     Indication: Psychotic symptom

REACTIONS (1)
  - Galactorrhoea [Recovered/Resolved]
